FAERS Safety Report 8014916-0 (Version None)
Quarter: 2011Q4

REPORT INFORMATION
  Report Type: 
  Country: None (occurrence: None)
  Receive Date: 20111229
  Receipt Date: 20111222
  Transmission Date: 20120403
  Serious: Yes (Life-Threatening, Hospitalization)
  Sender: FDA-Public Use
  Company Number: FR-GILEAD-2008-0017571

PATIENT
  Sex: Male

DRUGS (8)
  1. GAVISCON                           /00237601/ [Concomitant]
  2. PRIMPERAN TAB [Concomitant]
  3. ACETAMINOPHEN [Concomitant]
  4. ASPIRIN [Concomitant]
  5. KALETRA [Suspect]
     Indication: HIV INFECTION
     Dosage: UNK
     Route: 048
     Dates: start: 20080201, end: 20080306
  6. TRUVADA [Suspect]
     Indication: HIV INFECTION
     Dosage: UNK
     Route: 048
     Dates: start: 20080201, end: 20080306
  7. MAALOX                             /00082501/ [Concomitant]
  8. PPI [Concomitant]

REACTIONS (1)
  - STEVENS-JOHNSON SYNDROME [None]
